FAERS Safety Report 7373675-5 (Version None)
Quarter: 2011Q1

REPORT INFORMATION
  Report Type: 
  Country: None (occurrence: None)
  Receive Date: 20110325
  Receipt Date: 20110311
  Transmission Date: 20110831
  Serious: Yes (Death, Other)
  Sender: FDA-Public Use
  Company Number: GB-RANBAXY-2011RR-42962

PATIENT
  Age: 81 Year
  Sex: Male

DRUGS (5)
  1. SIMVASTATIN [Suspect]
     Dosage: 40 MG, UNK
  2. SODIUM FUSIDATE [Suspect]
     Indication: OSTEOMYELITIS
  3. FLOXACILLIN SODIUM [Concomitant]
     Indication: DIABETIC FOOT
  4. SODIUM FUSIDATE [Suspect]
     Indication: DIABETIC FOOT
  5. FLOXACILLIN SODIUM [Concomitant]
     Indication: OSTEOMYELITIS

REACTIONS (3)
  - RENAL FAILURE ACUTE [None]
  - RHABDOMYOLYSIS [None]
  - DRUG INTERACTION [None]
